FAERS Safety Report 4336510-5 (Version None)
Quarter: 2004Q2

REPORT INFORMATION
  Report Type: 
  Country: None (occurrence: None)
  Receive Date: 20040412
  Receipt Date: 20030924
  Transmission Date: 20050107
  Serious: Yes (Life-Threatening)
  Sender: FDA-Public Use
  Company Number: 200313639FR

PATIENT
  Age: 57 Year
  Sex: Female
  Weight: 120 kg

DRUGS (20)
  1. KETEK [Suspect]
     Indication: BRONCHITIS
     Route: 048
     Dates: start: 20021125, end: 20021125
  2. KETEK [Suspect]
     Indication: PYREXIA
     Route: 048
     Dates: start: 20021125, end: 20021125
  3. AMLODIPINE [Concomitant]
     Indication: HYPERTENSION
  4. BISOPROLOL FUMARATE [Concomitant]
     Indication: HYPERTENSION
  5. FELDENE [Concomitant]
     Indication: LOCALISED OSTEOARTHRITIS
  6. TOPALGIC [Concomitant]
  7. ZOLPIDEM TARTRATE [Concomitant]
  8. ACETAMINOPHEN [Concomitant]
  9. ART 50 [Concomitant]
     Indication: OSTEOARTHRITIS
  10. CYCLO 3 /FRA/ [Concomitant]
  11. MAXILASE [Concomitant]
  12. MUCOMYST [Concomitant]
  13. HEXALYSE [Concomitant]
  14. LOVENOX [Concomitant]
  15. ZANTAC [Concomitant]
  16. AUGMENTIN [Concomitant]
  17. DEPAKENE [Concomitant]
  18. DUPHALAC [Concomitant]
  19. DUOVENT [Concomitant]
  20. NOOTROPYL [Concomitant]

REACTIONS (8)
  - ANAPHYLACTIC SHOCK [None]
  - ANGIONEUROTIC OEDEMA [None]
  - ASPHYXIA [None]
  - CARDIO-RESPIRATORY ARREST [None]
  - CEREBRAL ISCHAEMIA [None]
  - COMA [None]
  - RESPIRATORY DISTRESS [None]
  - SEIZURE ANOXIC [None]
